FAERS Safety Report 10182718 (Version 2)
Quarter: 2014Q4

REPORT INFORMATION
  Report Type: Spontaneous
  Country: US (occurrence: None)
  Receive Date: 20140516
  Receipt Date: 20141125
  Transmission Date: 20150528
  Serious: Yes (Hospitalization)
  Sender: FDA-Public Use
  Company Number: UNT-2014-000008

PATIENT
  Age: 41 Year
  Sex: Female
  Weight: 57.1 kg

DRUGS (4)
  1. REMODULIN [Suspect]
     Active Substance: TREPROSTINIL
     Indication: COR PULMONALE CHRONIC
     Dosage: 0.0998 UG/KG/MIN
     Route: 058
     Dates: start: 20131201
  2. REMODULIN [Suspect]
     Active Substance: TREPROSTINIL
     Indication: PULMONARY HYPERTENSION
     Dosage: 0.0998 UG/KG/MIN
     Route: 058
     Dates: start: 20131201
  3. ADCIRCA [Concomitant]
     Active Substance: TADALAFIL
  4. COUMADIN [Concomitant]
     Active Substance: WARFARIN SODIUM

REACTIONS (7)
  - Eating disorder [None]
  - Tooth extraction [None]
  - Pneumonia [None]
  - Weight decreased [None]
  - Fatigue [None]
  - Nasopharyngitis [None]
  - Pyrexia [None]

NARRATIVE: CASE EVENT DATE: 20140428
